FAERS Safety Report 8879342 (Version 2)
Quarter: 2012Q4

REPORT INFORMATION
  Report Type: 
  Country: JP (occurrence: JP)
  Receive Date: 20121031
  Receipt Date: 20121106
  Transmission Date: 20130627
  Serious: No
  Sender: FDA-Public Use
  Company Number: JP-ASTRAZENECA-2012SE81351

PATIENT
  Age: 41 Year
  Sex: Male

DRUGS (1)
  1. CRESTOR [Suspect]
     Indication: HYPERCHOLESTEROLAEMIA
     Route: 048
     Dates: start: 20121004, end: 20121004

REACTIONS (3)
  - Malaise [Recovered/Resolved]
  - Chromaturia [Recovered/Resolved]
  - Myalgia [Recovered/Resolved]
